FAERS Safety Report 10072082 (Version 1)
Quarter: 2014Q2

REPORT INFORMATION
  Report Type: Spontaneous
  Country: US (occurrence: None)
  Receive Date: 20140410
  Receipt Date: 20140410
  Transmission Date: 20141212
  Serious: Yes (Hospitalization)
  Sender: FDA-Public Use
  Company Number: None

PATIENT
  Age: 53 Year
  Sex: Male

DRUGS (13)
  1. OXYCODONE - ACETAMINOPHEN [Suspect]
     Indication: BRAIN OPERATION
     Dosage: 10-325 1-2 TABS EVERY 4 HOURS BY MOUTH
     Route: 048
  2. OXYCODONE - ACETAMINOPHEN [Suspect]
     Indication: POSTOPERATIVE ANALGESIA
     Dosage: 10-325 1-2 TABS EVERY 4 HOURS BY MOUTH
     Route: 048
  3. HYDROXYZINE  25 MG [Concomitant]
  4. DIAZEPAM [Concomitant]
  5. BACTRIM DS 800-160 [Concomitant]
  6. WILD ALASKAN SALMON OIL 1000 MG. [Concomitant]
  7. TYLENOL [Concomitant]
  8. WILD ALASKAN SALMON OIL [Concomitant]
  9. VITAMIN C [Concomitant]
  10. EXCEDRIN [Concomitant]
  11. IBUPROFEN 800 MG 10 DAYS PRIOR TO SURGERY (NOT RESUMED) [Concomitant]
  12. METAMUCIL [Concomitant]
  13. B-COMPLEX VITAMIN [Concomitant]

REACTIONS (9)
  - Chest pain [None]
  - Dysuria [None]
  - Headache [None]
  - Dizziness [None]
  - Nausea [None]
  - Hyperhidrosis [None]
  - Vomiting [None]
  - Chromaturia [None]
  - Urine odour abnormal [None]
